FAERS Safety Report 16028905 (Version 1)
Quarter: 2019Q1

REPORT INFORMATION
  Report Type: Spontaneous
  Country: US (occurrence: US)
  Receive Date: 20190304
  Receipt Date: 20190304
  Transmission Date: 20190418
  Serious: No
  Sender: FDA-Public Use
  Company Number: US-IMPAX LABORATORIES, LLC-2018-IPXL-01224

PATIENT
  Age: 74 Year
  Sex: Male
  Weight: 84 kg

DRUGS (2)
  1. RYTARY [Suspect]
     Active Substance: CARBIDOPA\LEVODOPA
     Indication: PARKINSON^S DISEASE
     Dosage: 48.75/195MG, 2 CAPSULES THREE TIMES DAILY
     Route: 048
     Dates: start: 2017
  2. RYTARY [Suspect]
     Active Substance: CARBIDOPA\LEVODOPA
     Dosage: 48.75/195MG, 2 CAPSULES THREE TIMES DAILY AND TAKES ONE OR TWO CAPSULES MORE AS NEEDED
     Route: 048

REACTIONS (3)
  - Labelled drug-food interaction medication error [Unknown]
  - Intentional product use issue [Unknown]
  - Drug effect incomplete [Unknown]
